FAERS Safety Report 11323309 (Version 1)
Quarter: 2015Q3

REPORT INFORMATION
  Report Type: Spontaneous
  Country: US (occurrence: None)
  Receive Date: 20150729
  Receipt Date: 20150729
  Transmission Date: 20151125
  Serious: No
  Sender: FDA-Public Use
  Company Number: None

PATIENT
  Age: 51 Year
  Sex: Male

DRUGS (1)
  1. TECFIDERA [Suspect]
     Active Substance: DIMETHYL FUMARATE
     Indication: MULTIPLE SCLEROSIS
     Route: 048
     Dates: start: 20150725, end: 20150728

REACTIONS (8)
  - Pain [None]
  - Fatigue [None]
  - Nausea [None]
  - Mobility decreased [None]
  - Flushing [None]
  - Emotional disorder [None]
  - Vomiting [None]
  - Crying [None]

NARRATIVE: CASE EVENT DATE: 20150725
